FAERS Safety Report 6815107-9 (Version None)
Quarter: 2010Q3

REPORT INFORMATION
  Report Type: 
  Country: None (occurrence: None)
  Receive Date: 20100702
  Receipt Date: 20100624
  Transmission Date: 20110219
  Serious: Yes (Death, Other)
  Sender: FDA-Public Use
  Company Number: US-AMGEN-KDL420532

PATIENT
  Sex: Male

DRUGS (1)
  1. ENBREL [Suspect]
     Indication: JUVENILE ARTHRITIS
     Dates: start: 20100113, end: 20100522

REACTIONS (4)
  - DEATH [None]
  - DYSPNOEA [None]
  - JUVENILE ARTHRITIS [None]
  - MIDDLE INSOMNIA [None]
